FAERS Safety Report 8000646-8 (Version None)
Quarter: 2011Q4

REPORT INFORMATION
  Report Type: 
  Country: None (occurrence: None)
  Receive Date: 20111222
  Receipt Date: 20111214
  Transmission Date: 20120403
  Serious: No
  Sender: FDA-Public Use
  Company Number: FR-JNJFOC-20111208388

PATIENT
  Age: 89 Year
  Sex: Female

DRUGS (1)
  1. DURAGESIC-100 [Suspect]
     Indication: PRODUCT USED FOR UNKNOWN INDICATION
     Dosage: ONE 12.5UG AND AN HALF OF A 12.5UG PATCH
     Route: 062

REACTIONS (1)
  - DRUG PRESCRIBING ERROR [None]
